FAERS Safety Report 21762002 (Version 1)
Quarter: 2022Q4

REPORT INFORMATION
  Report Type: Spontaneous
  Country: PL (occurrence: PL)
  Receive Date: 20221221
  Receipt Date: 20221221
  Transmission Date: 20230113
  Serious: Yes (Other)
  Sender: FDA-Public Use
  Company Number: PL-BRISTOL-MYERS SQUIBB COMPANY-2022-149694

PATIENT
  Age: 8 Decade
  Sex: Female

DRUGS (3)
  1. BORTEZOMIB [Suspect]
     Active Substance: BORTEZOMIB
     Indication: Plasma cell myeloma
     Dosage: START DATE 2022
     Route: 065
     Dates: start: 2022
  2. POMALIDOMIDE [Suspect]
     Active Substance: POMALIDOMIDE
     Indication: Plasma cell myeloma
     Dosage: ROA-20053000, 4 MILLIGRAM, START DATE 2022
     Route: 048
     Dates: start: 2022
  3. DEXAMETHASONE [Suspect]
     Active Substance: DEXAMETHASONE
     Indication: Plasma cell myeloma
     Dosage: START DATE OF DRUG 2022
     Route: 065
     Dates: start: 2022

REACTIONS (2)
  - Renal failure [None]
  - Aphthous ulcer [None]

NARRATIVE: CASE EVENT DATE: 20220101
